FAERS Safety Report 20188961 (Version 2)
Quarter: 2022Q1

REPORT INFORMATION
  Report Type: Report from Study
  Country: US (occurrence: US)
  Receive Date: 20211215
  Receipt Date: 20220119
  Transmission Date: 20220423
  Serious: Yes (Other)
  Sender: FDA-Public Use
  Company Number: US-BAUSCH-BL-2021-022813

PATIENT
  Age: 69 Year
  Sex: Female
  Weight: 52.210 kg

DRUGS (1)
  1. TRULANCE [Suspect]
     Active Substance: PLECANATIDE
     Indication: Constipation
     Route: 048
     Dates: start: 2021, end: 202111

REACTIONS (6)
  - Rectal cancer [Not Recovered/Not Resolved]
  - Proctalgia [Unknown]
  - Drug intolerance [Unknown]
  - Malaise [Unknown]
  - Product availability issue [Unknown]
  - Therapy interrupted [Unknown]

NARRATIVE: CASE EVENT DATE: 20210101
